FAERS Safety Report 7503987-3 (Version None)
Quarter: 2011Q2

REPORT INFORMATION
  Report Type: 
  Country: None (occurrence: None)
  Receive Date: 20110525
  Receipt Date: 20110510
  Transmission Date: 20111010
  Serious: Yes (Hospitalization, Other)
  Sender: FDA-Public Use
  Company Number: US-JNJFOC-20110505922

PATIENT
  Sex: Female
  Weight: 72.56 kg

DRUGS (14)
  1. CATAPRES [Concomitant]
     Indication: PRODUCT USED FOR UNKNOWN INDICATION
     Route: 048
     Dates: start: 20100101
  2. CYCLOBENZAPRINE [Concomitant]
     Indication: PRODUCT USED FOR UNKNOWN INDICATION
     Route: 048
     Dates: start: 20090101
  3. FLONASE [Concomitant]
     Indication: PRODUCT USED FOR UNKNOWN INDICATION
     Route: 048
  4. LOPRESSOR [Concomitant]
     Indication: PRODUCT USED FOR UNKNOWN INDICATION
     Route: 048
  5. IBUPROFEN [Concomitant]
     Indication: PRODUCT USED FOR UNKNOWN INDICATION
     Route: 048
  6. CONJUGATED ESTROGEN [Concomitant]
     Indication: PRODUCT USED FOR UNKNOWN INDICATION
     Route: 048
     Dates: start: 20050101
  7. CYMBALTA [Concomitant]
     Indication: PRODUCT USED FOR UNKNOWN INDICATION
     Route: 048
  8. SEROQUEL [Concomitant]
     Indication: PRODUCT USED FOR UNKNOWN INDICATION
     Route: 048
  9. LORTAB [Concomitant]
     Indication: PRODUCT USED FOR UNKNOWN INDICATION
     Route: 048
  10. ZYRTEC [Suspect]
     Indication: OROPHARYNGEAL PAIN
     Route: 048
     Dates: start: 20110406, end: 20110407
  11. ATARAX [Concomitant]
     Indication: PRODUCT USED FOR UNKNOWN INDICATION
     Route: 048
  12. ZYRTEC [Suspect]
     Indication: SINUS DISORDER
     Route: 048
     Dates: start: 20110406, end: 20110407
  13. CETIRIZINE HCL [Suspect]
     Indication: SINUS DISORDER
     Route: 048
     Dates: start: 20110408
  14. VALPROIC ACID [Concomitant]
     Indication: PRODUCT USED FOR UNKNOWN INDICATION
     Route: 048
     Dates: start: 20090101

REACTIONS (16)
  - ORAL DISORDER [None]
  - DYSPNOEA [None]
  - PERIORBITAL DISORDER [None]
  - SPEECH DISORDER [None]
  - WEIGHT INCREASED [None]
  - THROAT LESION [None]
  - TONGUE DRY [None]
  - APHAGIA [None]
  - ERYTHEMA [None]
  - PHARYNGEAL ERYTHEMA [None]
  - MOUTH INJURY [None]
  - LOCAL SWELLING [None]
  - STOMATITIS [None]
  - SWELLING FACE [None]
  - CONDITION AGGRAVATED [None]
  - OFF LABEL USE [None]
